FAERS Safety Report 21841576 (Version 3)
Quarter: 2023Q2

REPORT INFORMATION
  Report Type: Spontaneous
  Country: JP (occurrence: JP)
  Receive Date: 20230110
  Receipt Date: 20230406
  Transmission Date: 20230721
  Serious: Yes (Death, Life-Threatening, Hospitalization, Disabling, Other)
  Sender: FDA-Public Use
  Company Number: JP-ASTELLAS-2022JP017524

PATIENT
  Age: 15 Year
  Sex: Male

DRUGS (10)
  1. PROGRAF [Suspect]
     Active Substance: TACROLIMUS
     Indication: Immunosuppressant drug therapy
     Dosage: 0.03 MG/KG, ONCE DAILY
     Route: 041
     Dates: start: 20210807, end: 20210809
  2. PROGRAF [Suspect]
     Active Substance: TACROLIMUS
     Indication: Bone marrow transplant rejection
     Dosage: 0.6 MG/KG, ONCE DAILY
     Route: 041
     Dates: start: 20210908, end: 20211112
  3. PROGRAF [Suspect]
     Active Substance: TACROLIMUS
     Indication: Graft versus host disease
  4. PROGRAF [Suspect]
     Active Substance: TACROLIMUS
     Indication: Graft versus host disease
  5. PREDNISOLONE [Suspect]
     Active Substance: PREDNISOLONE
     Indication: Immunosuppressant drug therapy
     Dosage: UNK UNK, UNKNOWN FREQ.
     Route: 065
     Dates: start: 20210807
  6. PREDNISOLONE [Suspect]
     Active Substance: PREDNISOLONE
     Dosage: UNK UNK, UNKNOWN FREQ.
     Route: 065
     Dates: start: 20210908
  7. MYCOPHENOLATE MOFETIL [Suspect]
     Active Substance: MYCOPHENOLATE MOFETIL
     Indication: Graft versus host disease
     Dosage: 2000 MG/DAY, UNKNOWN FREQ.
     Route: 041
  8. BUDESONIDE [Suspect]
     Active Substance: BUDESONIDE
     Indication: Graft versus host disease
     Dosage: 9 MG/DAY, UNKNOWN FREQ.
     Route: 048
  9. AMBISOME [Concomitant]
     Active Substance: AMPHOTERICIN B
     Indication: Bronchopulmonary aspergillosis
     Dosage: UNK UNK, UNKNOWN FREQ.
     Route: 065
  10. VORICONAZOLE [Concomitant]
     Active Substance: VORICONAZOLE
     Indication: Immunosuppressant drug therapy
     Dosage: UNK UNK, UNKNOWN FREQ.
     Route: 065
     Dates: start: 20211112

REACTIONS (5)
  - Bronchopulmonary aspergillosis [Not Recovered/Not Resolved]
  - Bacteroides bacteraemia [Recovering/Resolving]
  - Internal haemorrhage [Fatal]
  - Graft versus host disease [Not Recovered/Not Resolved]
  - Thrombotic microangiopathy [Not Recovered/Not Resolved]

NARRATIVE: CASE EVENT DATE: 20210908
